FAERS Safety Report 12404719 (Version 2)
Quarter: 2016Q2

REPORT INFORMATION
  Report Type: Spontaneous
  Country: US (occurrence: US)
  Receive Date: 20160525
  Receipt Date: 20160610
  Transmission Date: 20160815
  Serious: Yes (Hospitalization, Disabling)
  Sender: FDA-Public Use
  Company Number: US-PFIZER INC-2016272521

PATIENT
  Age: 29 Year
  Sex: Male

DRUGS (1)
  1. CHANTIX [Suspect]
     Active Substance: VARENICLINE TARTRATE
     Indication: SMOKING CESSATION THERAPY
     Dosage: 1MG ONCE IN THE MORNING AND ONCE IN THE EVENING
     Dates: start: 2010

REACTIONS (5)
  - Road traffic accident [Unknown]
  - Upper limb fracture [Unknown]
  - Memory impairment [Not Recovered/Not Resolved]
  - Tongue biting [Unknown]
  - Seizure [Recovering/Resolving]

NARRATIVE: CASE EVENT DATE: 2010
